FAERS Safety Report 10530766 (Version 1)
Quarter: 2014Q4

REPORT INFORMATION
  Report Type: Spontaneous
  Country: US (occurrence: None)
  Receive Date: 20141017
  Receipt Date: 20141017
  Transmission Date: 20150528
  Serious: Yes (Life-Threatening, Hospitalization, Disabling)
  Sender: FDA-Public Use
  Company Number: 54973 AE 1563

PATIENT
  Age: 7 Month
  Sex: Male

DRUGS (1)
  1. BABY TEETHING [Suspect]
     Active Substance: ARABICA COFFEE BEAN\ATROPA BELLADONNA\CALCIUM PHOSPHATE\CHAMOMILE
     Indication: TEETHING
     Dosage: 1/2 TABSLQ6-8HRS; 1TABSL

REACTIONS (9)
  - Child maltreatment syndrome [None]
  - Cerebral haemorrhage [None]
  - Cerebral palsy [None]
  - Seizure [None]
  - Blindness unilateral [None]
  - Head injury [None]
  - Muscular weakness [None]
  - Brain oedema [None]
  - Retinal haemorrhage [None]

NARRATIVE: CASE EVENT DATE: 20120823
